FAERS Safety Report 14212941 (Version 2)
Quarter: 2017Q4

REPORT INFORMATION
  Report Type: Spontaneous
  Country: US (occurrence: US)
  Receive Date: 20171122
  Receipt Date: 20171219
  Transmission Date: 20180321
  Serious: Yes (Other)
  Sender: FDA-Public Use
  Company Number: US-EMD SERONO-8205031

PATIENT
  Sex: Male

DRUGS (1)
  1. REBIF [Suspect]
     Active Substance: INTERFERON BETA-1A
     Indication: PRODUCT USED FOR UNKNOWN INDICATION
     Route: 058
     Dates: start: 20070123

REACTIONS (8)
  - Dandruff [Unknown]
  - Ear disorder [Unknown]
  - Injection site necrosis [Unknown]
  - Liver function test increased [Unknown]
  - Urticaria [Unknown]
  - Rash [Unknown]
  - Multiple allergies [Unknown]
  - Injection site pain [Unknown]
